FAERS Safety Report 7957861-9 (Version None)
Quarter: 2011Q4

REPORT INFORMATION
  Report Type: 
  Country: None (occurrence: None)
  Receive Date: 20111205
  Receipt Date: 20111125
  Transmission Date: 20120403
  Serious: Yes (Life-Threatening)
  Sender: FDA-Public Use
  Company Number: FR-MPIJNJ-2011-05989

PATIENT

DRUGS (1)
  1. VELCADE [Suspect]
     Indication: MULTIPLE MYELOMA
     Dosage: UNK
     Route: 042
     Dates: start: 20071001, end: 20080101

REACTIONS (2)
  - DISEASE PROGRESSION [None]
  - MYELODYSPLASTIC SYNDROME [None]
